FAERS Safety Report 7623645-4 (Version None)
Quarter: 2011Q3

REPORT INFORMATION
  Report Type: 
  Country: None (occurrence: None)
  Receive Date: 20110720
  Receipt Date: 20110705
  Transmission Date: 20111222
  Serious: No
  Sender: FDA-Public Use
  Company Number: AT-SANOFI-AVENTIS-2011SA044214

PATIENT
  Age: 76 Year
  Sex: Female
  Weight: 72 kg

DRUGS (9)
  1. BISOPROLOL [Concomitant]
     Route: 065
  2. DIGOXIN [Concomitant]
     Route: 065
     Dates: start: 20110121
  3. DRONEDARONE HCL [Suspect]
     Indication: ATRIAL FIBRILLATION
     Route: 048
     Dates: start: 20110114, end: 20110121
  4. METAMIZOLE [Concomitant]
     Route: 065
     Dates: start: 20110209
  5. PHENPROCOUMON [Concomitant]
     Route: 065
  6. SIMVASTATIN [Concomitant]
     Route: 065
  7. NSAID'S [Concomitant]
     Route: 065
  8. TRAMADOL HCL [Concomitant]
     Route: 065
     Dates: start: 20110209
  9. DIURETICS [Concomitant]
     Route: 065

REACTIONS (1)
  - MYOCARDIAL INFARCTION [None]
